FAERS Safety Report 6358329-6 (Version None)
Quarter: 2009Q3

REPORT INFORMATION
  Report Type: 
  Country: None (occurrence: None)
  Receive Date: 20090916
  Receipt Date: 20090908
  Transmission Date: 20100115
  Serious: Yes (Death)
  Sender: FDA-Public Use
  Company Number: US-GILEAD-2009-0024072

PATIENT
  Sex: Female
  Weight: 37.228 kg

DRUGS (9)
  1. LETAIRIS [Suspect]
     Indication: PULMONARY ARTERIAL HYPERTENSION
     Route: 048
     Dates: start: 20071121
  2. COUMADIN [Concomitant]
  3. COUMADIN [Concomitant]
  4. MAG-OX [Concomitant]
  5. PROTONIX [Concomitant]
  6. MORPHINE SULFATE [Concomitant]
  7. BENADRYL [Concomitant]
  8. MULTI-VITAMINS [Concomitant]
  9. POTASSIUM CHLORIDE [Concomitant]

REACTIONS (1)
  - DEATH [None]
